FAERS Safety Report 4436377-0 (Version None)
Quarter: 2004Q3

REPORT INFORMATION
  Report Type: 
  Country: None (occurrence: None)
  Receive Date: 20040830
  Receipt Date: 20040329
  Transmission Date: 20050211
  Serious: Yes (Hospitalization)
  Sender: FDA-Public Use
  Company Number: US-BRISTOL-MYERS SQUIBB COMPANY-12545000

PATIENT
  Age: 46 Year
  Sex: Female

DRUGS (5)
  1. ABILIFY [Suspect]
     Indication: MAJOR DEPRESSION
     Dosage: DOSE DECR 24-FEB-04 (DOSE NOT SPECIFIED); D/C 02-APR-04; ADDITIONAL LOT #: 3C73YUD1A
     Route: 048
     Dates: start: 20040126, end: 20040402
  2. ABILIFY [Suspect]
     Indication: PSYCHOTIC DISORDER
     Dosage: DOSE DECR 24-FEB-04 (DOSE NOT SPECIFIED); D/C 02-APR-04; ADDITIONAL LOT #: 3C73YUD1A
     Route: 048
     Dates: start: 20040126, end: 20040402
  3. TEMAZEPAM [Concomitant]
  4. KLONOPIN [Concomitant]
  5. PROZAC [Concomitant]

REACTIONS (1)
  - PANCREATITIS [None]
